FAERS Safety Report 8837034 (Version 1)
Quarter: 2012Q4

REPORT INFORMATION
  Report Type: 
  Country: US (occurrence: US)
  Receive Date: 20121012
  Receipt Date: 20121012
  Transmission Date: 20130627
  Serious: No
  Sender: FDA-Public Use
  Company Number: US-MYLANLABS-2012S1018449

PATIENT
  Age: 75 Year
  Sex: Female
  Weight: 52.16 kg

DRUGS (5)
  1. IBANDRONATE SODIUM TABLETS [Suspect]
     Indication: OSTEOPOROSIS
     Route: 048
     Dates: start: 20120830, end: 20120830
  2. EVISTA [Concomitant]
     Indication: OSTEOPOROSIS
  3. CALCIUM [Concomitant]
  4. VITAMIN D [Concomitant]
  5. ATENOLOL [Concomitant]
     Indication: BLOOD PRESSURE INCREASED
     Dosage: Using one half of a 25mg atenolol tablet

REACTIONS (1)
  - Back pain [Not Recovered/Not Resolved]
